FAERS Safety Report 5311860-4 (Version None)
Quarter: 2007Q2

REPORT INFORMATION
  Report Type: 
  Country: None (occurrence: None)
  Receive Date: 20070427
  Receipt Date: 20070427
  Transmission Date: 20071010
  Serious: Yes (Other)
  Sender: FDA-Public Use
  Company Number: None

PATIENT
  Sex: Female
  Weight: 81.6475 kg

DRUGS (1)
  1. TEQUIN [Suspect]
     Indication: PYELONEPHRITIS
     Dosage: 400MG  DAILY  PO
     Route: 048
     Dates: start: 20030303, end: 20030313

REACTIONS (2)
  - ABDOMINAL DISCOMFORT [None]
  - CARDIAC DISORDER [None]
